FAERS Safety Report 15115437 (Version 2)
Quarter: 2018Q3

REPORT INFORMATION
  Report Type: Report from Study
  Country: JP (occurrence: JP)
  Receive Date: 20180706
  Receipt Date: 20180811
  Transmission Date: 20181010
  Serious: Yes (Death, Other)
  Sender: FDA-Public Use
  Company Number: JP-UCBSA-2017044671

PATIENT
  Age: 63 Year
  Sex: Male
  Weight: 63 kg

DRUGS (6)
  1. LACOSAMIDE. [Suspect]
     Active Substance: LACOSAMIDE
     Indication: SIMPLE PARTIAL SEIZURES
     Dosage: 50 MG, 2X/DAY (BID)
     Route: 048
     Dates: start: 20170626, end: 20170718
  2. EXCEGRAN [Concomitant]
     Active Substance: ZONISAMIDE
     Indication: SIMPLE PARTIAL SEIZURES
  3. DEPAKENE [Suspect]
     Active Substance: VALPROIC ACID
     Indication: SIMPLE PARTIAL SEIZURES
     Dosage: 1200 MG DAILY DOSE
     Route: 048
     Dates: start: 20170422, end: 20171027
  4. E KEPPRA [Concomitant]
     Active Substance: LEVETIRACETAM
     Indication: EPILEPSY
     Dosage: 1000 MG DAILY DOSE
     Route: 048
     Dates: start: 20170616, end: 20170908
  5. LACOSAMIDE. [Suspect]
     Active Substance: LACOSAMIDE
     Dosage: 100 MG, 2X/DAY (BID)
     Route: 048
     Dates: start: 20170719, end: 20180301
  6. EXCEGRAN [Concomitant]
     Active Substance: ZONISAMIDE
     Indication: EPILEPSY
     Dosage: 200 MG, UNK
     Route: 048
     Dates: start: 20171028, end: 20180301

REACTIONS (8)
  - Large intestine perforation [Fatal]
  - Septic shock [Fatal]
  - Platelet count decreased [Recovered/Resolved]
  - Protein total decreased [Recovering/Resolving]
  - Blood albumin decreased [Recovering/Resolving]
  - Decreased appetite [Recovering/Resolving]
  - Anaemia [Not Recovered/Not Resolved]
  - Paralysis [Recovering/Resolving]

NARRATIVE: CASE EVENT DATE: 20171007
